FAERS Safety Report 26151139 (Version 1)
Quarter: 2025Q4

REPORT INFORMATION
  Report Type: Spontaneous
  Country: CN (occurrence: None)
  Receive Date: 20251212
  Receipt Date: 20251212
  Transmission Date: 20260118
  Serious: Yes (Other)
  Sender: INFORLIFE
  Company Number: CN-INFO-20250313

PATIENT
  Age: 71 Year
  Sex: Male

DRUGS (1)
  1. ROPIVACAINE [Suspect]
     Active Substance: ROPIVACAINE
     Indication: Anaesthesia
     Dosage: A TOTAL OF 4 ML OF 0.75% ROPIVACAINE (WITHOUT HYALURONIDASE) WAS INJECTED INTO THE SUB-TENON?S SP...
     Route: 047

REACTIONS (2)
  - Orbital apex syndrome [Recovered/Resolved]
  - Off label use [Recovered/Resolved]
